FAERS Safety Report 8562167-3 (Version None)
Quarter: 2012Q3

REPORT INFORMATION
  Report Type: 
  Country: None (occurrence: None)
  Receive Date: 20120802
  Receipt Date: 20120723
  Transmission Date: 20120928
  Serious: Yes (Other)
  Sender: FDA-Public Use
  Company Number: US-ENDO PHARMACEUTICALS INC.-OPCR20121374

PATIENT
  Sex: Female
  Weight: 79.45 kg

DRUGS (7)
  1. OPANA ER [Concomitant]
  2. OPANA ER [Suspect]
     Indication: PAIN
     Route: 048
     Dates: start: 20120522, end: 20120528
  3. OPANA ER [Concomitant]
  4. OPANA ER [Suspect]
     Indication: BACK PAIN
  5. OPANA ER [Concomitant]
     Route: 048
     Dates: start: 20120130, end: 20120521
  6. OPANA ER [Suspect]
     Indication: PAIN IN EXTREMITY
  7. PERCOCET [Concomitant]
     Indication: PAIN
     Dosage: 30/975 MG
     Route: 048
     Dates: start: 20120206

REACTIONS (5)
  - OROPHARYNGEAL BLISTERING [None]
  - GINGIVAL RECESSION [None]
  - DYSPHAGIA [None]
  - GINGIVAL ERYTHEMA [None]
  - GINGIVAL INFECTION [None]
